FAERS Safety Report 15402915 (Version 1)
Quarter: 2018Q3

REPORT INFORMATION
  Report Type: Spontaneous
  Country: US (occurrence: US)
  Receive Date: 20180919
  Receipt Date: 20180919
  Transmission Date: 20181010
  Serious: Yes (Hospitalization)
  Sender: FDA-Public Use
  Company Number: US-OTSUKA-2018_021196

PATIENT

DRUGS (1)
  1. ABILIFY [Suspect]
     Active Substance: ARIPIPRAZOLE
     Indication: MAJOR DEPRESSION
     Dosage: UNK
     Route: 065
     Dates: start: 2002, end: 2012

REACTIONS (10)
  - Mental disorder [Unknown]
  - Hypersexuality [Unknown]
  - Economic problem [Unknown]
  - Drug abuse [Unknown]
  - Bankruptcy [Unknown]
  - Compulsive shopping [Not Recovered/Not Resolved]
  - Tobacco abuse [Unknown]
  - Compulsive sexual behaviour [Not Recovered/Not Resolved]
  - Obsessive-compulsive disorder [Unknown]
  - Eating disorder [Not Recovered/Not Resolved]

NARRATIVE: CASE EVENT DATE: 2002
